FAERS Safety Report 6527923-1 (Version None)
Quarter: 2010Q1

REPORT INFORMATION
  Report Type: 
  Country: None (occurrence: None)
  Receive Date: 20100106
  Receipt Date: 20091229
  Transmission Date: 20100710
  Serious: Yes (Hospitalization)
  Sender: FDA-Public Use
  Company Number: CH-BAYER-201010053GPV

PATIENT
  Age: 78 Year
  Sex: Male

DRUGS (5)
  1. ASPIRIN [Suspect]
     Indication: DRUG USE FOR UNKNOWN INDICATION
     Route: 048
     Dates: start: 20090420
  2. AZICLAV [Suspect]
     Indication: SKIN INFECTION
     Route: 048
     Dates: start: 20090420, end: 20090518
  3. COTENOLOL [Concomitant]
     Route: 048
  4. AMLODIPINE [Concomitant]
     Route: 048
  5. ACTOS [Concomitant]
     Route: 048

REACTIONS (1)
  - CHOLESTATIC LIVER INJURY [None]
